FAERS Safety Report 5229662-6 (Version None)
Quarter: 2007Q1

REPORT INFORMATION
  Report Type: 
  Country: None (occurrence: None)
  Receive Date: 20070201
  Receipt Date: 20070122
  Transmission Date: 20070707
  Serious: Yes (Hospitalization)
  Sender: FDA-Public Use
  Company Number: 2007S1000018

PATIENT
  Age: 39 Year
  Sex: Female
  Weight: 56.6996 kg

DRUGS (9)
  1. ROXICODONE [Suspect]
     Dosage: 30 MG;PRN;PO
     Route: 048
     Dates: start: 20050718
  2. AVINZA [Suspect]
     Dosage: 120 MG;BID;PO
     Route: 048
     Dates: start: 20060406
  3. SOMA [Concomitant]
  4. XANAX [Concomitant]
  5. LEXAPRO [Concomitant]
  6. VYTORIN [Concomitant]
  7. ADDERALL 10 [Concomitant]
  8. FENTANYL BUCCAL TABLET [Suspect]
     Indication: BREAKTHROUGH PAIN
     Dosage: 800 UG;PRN;BUCC
     Route: 002
     Dates: start: 20050809
  9. FENTANYL BUCCAL TABLET [Suspect]
     Indication: DRUG TOLERANCE
     Dosage: 800 UG;PRN;BUCC
     Route: 002
     Dates: start: 20050809

REACTIONS (2)
  - GRAND MAL CONVULSION [None]
  - TREATMENT NONCOMPLIANCE [None]
